FAERS Safety Report 12366577 (Version 1)
Quarter: 2016Q2

REPORT INFORMATION
  Report Type: Spontaneous
  Country: JP (occurrence: JP)
  Receive Date: 20160513
  Receipt Date: 20160513
  Transmission Date: 20160815
  Serious: Yes (Hospitalization, Other)
  Sender: FDA-Public Use
  Company Number: JP-BAYER-2016-081219

PATIENT
  Age: 78 Year
  Sex: Female

DRUGS (7)
  1. IOPROMIDE 370 [Suspect]
     Active Substance: IOPROMIDE
     Indication: COMPUTERISED TOMOGRAM ABDOMEN
     Dosage: 80 ML, ONCE
     Route: 042
     Dates: start: 20160407, end: 20160407
  2. IOPROMIDE 370 [Suspect]
     Active Substance: IOPROMIDE
     Indication: CERVIX CARCINOMA
  3. KETOPROFEN. [Concomitant]
     Active Substance: KETOPROFEN
     Indication: BACK PAIN
     Dosage: 1 DF, QD
     Route: 003
  4. SENNOSIDE [Concomitant]
     Active Substance: SENNOSIDES
     Indication: CONSTIPATION
     Dosage: 1 DF, QD
     Route: 048
  5. ELDECALCITOL [Concomitant]
     Active Substance: ELDECALCITOL
     Indication: OSTEOPOROSIS
     Dosage: 1 DF, QD
     Route: 048
  6. IOPROMIDE 370 [Suspect]
     Active Substance: IOPROMIDE
     Indication: COMPUTERISED TOMOGRAM THORAX
  7. FOSAMAC [Concomitant]
     Active Substance: ALENDRONATE SODIUM
     Indication: OSTEOPOROSIS
     Dosage: 1 DF, OW
     Route: 048

REACTIONS (6)
  - Radial pulse abnormal [Recovered/Resolved]
  - Feeling abnormal [Recovered/Resolved]
  - Erythema [Recovered/Resolved]
  - Depressed level of consciousness [Recovered/Resolved]
  - Blood pressure decreased [Recovered/Resolved]
  - Vomiting [Recovered/Resolved]

NARRATIVE: CASE EVENT DATE: 20160407
